FAERS Safety Report 5573845-2 (Version None)
Quarter: 2007Q4

REPORT INFORMATION
  Report Type: 
  Country: None (occurrence: None)
  Receive Date: 20071226
  Receipt Date: 20071214
  Transmission Date: 20080405
  Serious: Yes (Other)
  Sender: FDA-Public Use
  Company Number: US-PFIZER INC-2007105481

PATIENT
  Sex: Female
  Weight: 130.2 kg

DRUGS (13)
  1. LYRICA [Suspect]
     Indication: FIBROMYALGIA
  2. CHANTIX [Concomitant]
  3. EFFEXOR XR [Concomitant]
  4. TOPAMAX [Concomitant]
  5. DETROL LA [Concomitant]
  6. PROVIGIL [Concomitant]
  7. BACLOFEN [Concomitant]
  8. ALLEGRA [Concomitant]
  9. TOPROL-XL [Concomitant]
  10. ALL OTHER THERAPEUTIC PRODUCTS [Concomitant]
  11. FLONASE [Concomitant]
  12. ASTELIN [Concomitant]
  13. LIDODERM [Concomitant]

REACTIONS (7)
  - BLOOD PRESSURE INCREASED [None]
  - HEADACHE [None]
  - MYALGIA [None]
  - OEDEMA PERIPHERAL [None]
  - PAIN [None]
  - SWELLING FACE [None]
  - WEIGHT INCREASED [None]
